FAERS Safety Report 5643993-7 (Version None)
Quarter: 2008Q1

REPORT INFORMATION
  Report Type: 
  Country: None (occurrence: None)
  Receive Date: 20080131
  Receipt Date: 20071023
  Transmission Date: 20080703
  Serious: No
  Sender: FDA-Public Use
  Company Number: PHEH2007US13995

PATIENT
  Age: 85 Year
  Sex: Male
  Weight: 81.6 kg

DRUGS (3)
  1. TEKTURNA [Suspect]
     Indication: HYPERTENSION
     Dosage: 150MG, QD, ORAL
     Route: 048
     Dates: start: 20071020, end: 20071023
  2. AVODART [Concomitant]
  3. ASPIRIN [Concomitant]

REACTIONS (1)
  - DIZZINESS [None]
